FAERS Safety Report 7249087-1 (Version None)
Quarter: 2011Q1

REPORT INFORMATION
  Report Type: 
  Country: None (occurrence: None)
  Receive Date: 20110128
  Receipt Date: 20101007
  Transmission Date: 20110831
  Serious: Yes (Hospitalization, Other)
  Sender: FDA-Public Use
  Company Number: US-BAYER-201025801NA

PATIENT
  Sex: Female
  Weight: 63.636 kg

DRUGS (4)
  1. YAZ [Suspect]
     Indication: PREMENSTRUAL SYNDROME
     Route: 048
     Dates: start: 20080101, end: 20090101
  2. YASMIN [Suspect]
     Indication: PRODUCT USED FOR UNKNOWN INDICATION
     Route: 048
  3. CYMBALTA [Concomitant]
  4. THYROID TAB [Concomitant]

REACTIONS (10)
  - NAUSEA [None]
  - HYPERVENTILATION [None]
  - CHOLECYSTITIS CHRONIC [None]
  - GENERALISED ANXIETY DISORDER [None]
  - ANXIETY [None]
  - CHOKING SENSATION [None]
  - PALPITATIONS [None]
  - DIARRHOEA [None]
  - CHOLELITHIASIS [None]
  - DIZZINESS [None]
